FAERS Safety Report 4750369-3 (Version None)
Quarter: 2005Q3

REPORT INFORMATION
  Report Type: 
  Country: None (occurrence: None)
  Receive Date: 20050823
  Receipt Date: 20050713
  Transmission Date: 20060218
  Serious: Yes (Other)
  Sender: FDA-Public Use
  Company Number: 2005AP03854

PATIENT
  Age: 21317 Day
  Sex: Male

DRUGS (10)
  1. SEROQUEL [Suspect]
     Indication: SCHIZOPHRENIA
     Route: 048
     Dates: start: 20050427, end: 20050428
  2. SEROQUEL [Suspect]
     Route: 048
     Dates: start: 20050429, end: 20050501
  3. SEROQUEL [Suspect]
     Route: 048
     Dates: start: 20050502, end: 20050507
  4. SEROQUEL [Suspect]
     Route: 048
     Dates: start: 20050508, end: 20050605
  5. RISPERDAL [Concomitant]
     Indication: SCHIZOPHRENIA
     Route: 048
     Dates: start: 20050209, end: 20050227
  6. RISPERDAL [Concomitant]
     Route: 048
     Dates: start: 20050228
  7. ALEVIATIN [Concomitant]
     Indication: EPILEPTIC PSYCHOSIS
     Route: 048
     Dates: start: 20050125
  8. LENDORMIN [Concomitant]
     Indication: SCHIZOPHRENIA
     Route: 048
     Dates: start: 20050214
  9. DEPAS [Concomitant]
     Indication: SCHIZOPHRENIA
     Route: 048
     Dates: start: 20050214
  10. HIRNAMIN [Concomitant]
     Indication: SCHIZOPHRENIA
     Route: 048
     Dates: start: 20050214

REACTIONS (1)
  - PLATELET COUNT DECREASED [None]
